FAERS Safety Report 4370760-7 (Version None)
Quarter: 2004Q2

REPORT INFORMATION
  Report Type: 
  Country: None (occurrence: None)
  Receive Date: 20040528
  Receipt Date: 20040514
  Transmission Date: 20050107
  Serious: Yes (Other)
  Sender: FDA-Public Use
  Company Number: A0510960A

PATIENT
  Age: 22 Year
  Sex: Female
  Weight: 103.4 kg

DRUGS (8)
  1. GAVISCON [Suspect]
     Indication: GASTROOESOPHAGEAL REFLUX DISEASE
     Dosage: ORAL
     Route: 048
     Dates: start: 19920101
  2. METHYLCELLULOSE CAPLET (METHYLCELLULOSE) [Suspect]
     Dosage: ORAL
     Route: 048
  3. RANITIDINE HYDROCHLORIDE [Concomitant]
  4. OMEPRAZOLE [Concomitant]
  5. SUCRALFATE [Concomitant]
  6. IMIPRAMINE [Concomitant]
  7. SERTRALINE HYDROCHLORIDE [Concomitant]
  8. TPN [Concomitant]

REACTIONS (6)
  - ANAPHYLACTIC REACTION [None]
  - CONDITION AGGRAVATED [None]
  - FREQUENT BOWEL MOVEMENTS [None]
  - GASTROOESOPHAGEAL REFLUX DISEASE [None]
  - OESOPHAGITIS [None]
  - SELF-MEDICATION [None]
